FAERS Safety Report 7945104-1 (Version None)
Quarter: 2011Q4

REPORT INFORMATION
  Report Type: 
  Country: None (occurrence: None)
  Receive Date: 20111129
  Receipt Date: 20111129
  Transmission Date: 20120403
  Serious: Yes (Other)
  Sender: FDA-Public Use
  Company Number: None

PATIENT
  Sex: Female

DRUGS (1)
  1. KEPPRA [Suspect]
     Indication: CEREBROVASCULAR ACCIDENT
     Dosage: INJECTIONS TWICE A DAY
     Dates: start: 20091001, end: 20091201

REACTIONS (5)
  - PRURITUS GENERALISED [None]
  - DYSGEUSIA [None]
  - CARDIAC DISORDER [None]
  - HALLUCINATION [None]
  - SCRATCH [None]
